FAERS Safety Report 25602256 (Version 1)
Quarter: 2025Q3

REPORT INFORMATION
  Report Type: Spontaneous
  Country: US (occurrence: None)
  Receive Date: 20250724
  Receipt Date: 20250724
  Transmission Date: 20251020
  Serious: Yes (Hospitalization, Other)
  Sender: FDA-CTU
  Company Number: None

PATIENT
  Age: 78 Year
  Sex: Male
  Weight: 80.8 kg

DRUGS (3)
  1. CARVYKTI [Suspect]
     Active Substance: CILTACABTAGENE AUTOLEUCEL
     Dates: start: 20250623
  2. FLUDARABINE [Suspect]
     Active Substance: FLUDARABINE PHOSPHATE
  3. CYCLOPHOSPHAMIDE [Suspect]
     Active Substance: CYCLOPHOSPHAMIDE

REACTIONS (8)
  - Cytokine release syndrome [None]
  - Respiratory failure [None]
  - Renal tubular necrosis [None]
  - Immune effector cell-associated neurotoxicity syndrome [None]
  - Hypertension [None]
  - Hypotension [None]
  - Bradycardia [None]
  - Haematochezia [None]

NARRATIVE: CASE EVENT DATE: 20250701
